FAERS Safety Report 25526127 (Version 4)
Quarter: 2025Q4

REPORT INFORMATION
  Report Type: Report from Study
  Country: US (occurrence: US)
  Receive Date: 20250707
  Receipt Date: 20251013
  Transmission Date: 20260118
  Serious: Yes (Other)
  Sender: TAIHO ONCOLOGY INC
  Company Number: US-TAIHOP-2025-003482

PATIENT
  Age: 72 Year
  Sex: Male
  Weight: 68.95 kg

DRUGS (9)
  1. INQOVI [Suspect]
     Active Substance: CEDAZURIDINE\DECITABINE
     Indication: Oesophageal carcinoma
     Dosage: 135 MG (35 MG DECITABINE AND 100 MG CEDAZURIDINE), DAYS 1-5 OF EACH 28 DAY CYCLE), CYCLE 7, 9
     Route: 048
  2. INQOVI [Suspect]
     Active Substance: CEDAZURIDINE\DECITABINE
     Dosage: 135 MG (35 MG DECITABINE AND 100 MG CEDAZURIDINE), DAYS 1-3 OF EVERY 28 DAYS, CYCLE 9
     Route: 048
  3. MULTIVITAMIN ADULT [Concomitant]
     Indication: Product used for unknown indication
  4. NEUPOGEN [Concomitant]
     Active Substance: FILGRASTIM
     Indication: Product used for unknown indication
  5. PROCRIT [Concomitant]
     Active Substance: ERYTHROPOIETIN
     Indication: Product used for unknown indication
  6. SYNTHROID [Concomitant]
     Active Substance: LEVOTHYROXINE SODIUM
     Indication: Product used for unknown indication
     Route: 048
  7. LIDOCAINE [Concomitant]
     Active Substance: LIDOCAINE
     Indication: Product used for unknown indication
  8. MAALOX ANTACID [Concomitant]
     Active Substance: ALUMINUM HYDROXIDE\DIMETHICONE\MAGNESIUM HYDROXIDE
     Indication: Product used for unknown indication
  9. DIPHENHYDRAMINE [Concomitant]
     Active Substance: DIPHENHYDRAMINE
     Indication: Product used for unknown indication

REACTIONS (6)
  - Oral infection [Recovering/Resolving]
  - Cytopenia [Recovering/Resolving]
  - White blood cell count decreased [Unknown]
  - Mouth injury [Recovering/Resolving]
  - Inappropriate schedule of product administration [Unknown]
  - Disease progression [Unknown]
